FAERS Safety Report 9232027 (Version 1)
Quarter: 2013Q2

REPORT INFORMATION
  Report Type: Spontaneous
  Country: US (occurrence: US)
  Receive Date: 20130415
  Receipt Date: 20130415
  Transmission Date: 20140414
  Serious: Yes (Hospitalization)
  Sender: FDA-Public Use
  Company Number: US-COVIDIEN/TYCO HEALTHCARE/MALLINCKRODT-T201204634

PATIENT
  Age: 65 Year
  Sex: Male

DRUGS (3)
  1. METHADOSE [Suspect]
     Dosage: 130 TABS/PILLS/CAPSULES
  2. FENTANYL [Suspect]
     Dosage: 28 (POWDER/GRANULES)
  3. BENZODIAZEPINE DERIVATIVES [Suspect]

REACTIONS (1)
  - Suicide attempt [Unknown]
